FAERS Safety Report 16083537 (Version 2)
Quarter: 2019Q1

REPORT INFORMATION
  Report Type: Spontaneous
  Country: JP (occurrence: JP)
  Receive Date: 20190318
  Receipt Date: 20190329
  Transmission Date: 20190418
  Serious: Yes (Hospitalization)
  Sender: FDA-Public Use
  Company Number: JP-ALLERGAN-1911070US

PATIENT
  Sex: Male

DRUGS (4)
  1. SULPIRIDE [Concomitant]
     Active Substance: SULPIRIDE
     Indication: DEPRESSION
     Dosage: 50 MG, QD
     Route: 065
  2. ESCITALOPRAM OXALATE - BP [Suspect]
     Active Substance: ESCITALOPRAM OXALATE
     Dosage: 10 MG, QD
     Route: 048
  3. ANTIHYPERTENSIVES [Concomitant]
     Active Substance: UNSPECIFIED INGREDIENT
     Indication: HYPERTENSION
     Route: 048
  4. ESCITALOPRAM OXALATE - BP [Suspect]
     Active Substance: ESCITALOPRAM OXALATE
     Indication: DEPRESSION
     Dosage: 20 MG, QD
     Route: 048

REACTIONS (2)
  - Alcoholism [Unknown]
  - Condition aggravated [Unknown]
